FAERS Safety Report 8491168-9 (Version None)
Quarter: 2012Q2

REPORT INFORMATION
  Report Type: 
  Country: None (occurrence: None)
  Receive Date: 20120402
  Receipt Date: 20090618
  Transmission Date: 20120825
  Serious: Yes (Other)
  Sender: FDA-Public Use
  Company Number: PHEH2009US06492

PATIENT
  Age: 41 Year
  Sex: Female
  Weight: 99.8 kg

DRUGS (2)
  1. BENICAR HCT [Concomitant]
  2. EXFORGE HCT [Suspect]
     Indication: BLOOD PRESSURE INADEQUATELY CONTROLLED
     Dosage: 5/160/25 MG, QD, ORAL
     Route: 048
     Dates: start: 20090605, end: 20090615

REACTIONS (2)
  - BLOOD PRESSURE SYSTOLIC INCREASED [None]
  - DIZZINESS [None]
